FAERS Safety Report 6306891-1 (Version None)
Quarter: 2009Q3

REPORT INFORMATION
  Report Type: 
  Country: None (occurrence: None)
  Receive Date: 20090811
  Receipt Date: 20090811
  Transmission Date: 20100115
  Serious: Yes (Death)
  Sender: FDA-Public Use
  Company Number: None

PATIENT
  Sex: Male
  Weight: 127.0072 kg

DRUGS (5)
  1. CELEXA [Suspect]
     Dosage: NOT PRESCRIBED FOR THE CLIENT
  2. LEXAPRO [Suspect]
     Indication: MAJOR DEPRESSION
     Dosage: 20 MG AT BEDTIME PO
     Route: 048
     Dates: start: 20080529, end: 20081015
  3. LAMICTAL [Suspect]
  4. XANAX [Suspect]
  5. GABAPENTIN [Suspect]

REACTIONS (4)
  - COMPLETED SUICIDE [None]
  - DRUG TOXICITY [None]
  - INTENTIONAL OVERDOSE [None]
  - SELF-MEDICATION [None]
